FAERS Safety Report 21888791 (Version 1)
Quarter: 2023Q1

REPORT INFORMATION
  Report Type: Report from Study
  Country: CO (occurrence: CO)
  Receive Date: 20230120
  Receipt Date: 20230120
  Transmission Date: 20230417
  Serious: Yes (Other)
  Sender: FDA-Public Use
  Company Number: CO-AMGEN-COLSL2022221145

PATIENT
  Age: 56 Year
  Sex: Female

DRUGS (2)
  1. VECTIBIX [Suspect]
     Active Substance: PANITUMUMAB
     Indication: Colorectal cancer metastatic
     Dosage: UNK Q2WK
     Route: 065
     Dates: start: 20221101
  2. POLYVINYL ALCOHOL [Concomitant]
     Active Substance: POLYVINYL ALCOHOL
     Dosage: UNK (APPLY 1 OR 2 DROPS IN EACH EYE 2 TO 3 TIMES A DAY)
     Route: 047
     Dates: start: 2022

REACTIONS (7)
  - Poisoning [Recovering/Resolving]
  - Hypoxia [Recovering/Resolving]
  - Hepatic cancer [Not Recovered/Not Resolved]
  - Skin reaction [Not Recovered/Not Resolved]
  - Pruritus [Not Recovered/Not Resolved]
  - Burning sensation [Recovering/Resolving]
  - Hypersensitivity [Recovering/Resolving]

NARRATIVE: CASE EVENT DATE: 20220101
